FAERS Safety Report 19619843 (Version 2)
Quarter: 2022Q2

REPORT INFORMATION
  Report Type: Spontaneous
  Country: US (occurrence: None)
  Receive Date: 20210728
  Receipt Date: 20220621
  Transmission Date: 20220721
  Serious: No
  Sender: FDA-Public Use
  Company Number: US-ROCHE-2745388

PATIENT
  Sex: Female

DRUGS (3)
  1. XELODA [Suspect]
     Active Substance: CAPECITABINE
     Indication: Product used for unknown indication
     Dosage: 3 PILLS TWICE PER DAY
     Route: 065
  2. XELODA [Suspect]
     Active Substance: CAPECITABINE
     Dosage: 2 PILLS TWICE PER DAY- ONE WEEK ON AND ONE WEEK OFF
     Route: 065
  3. TUKYSA [Suspect]
     Active Substance: TUCATINIB
     Indication: Breast cancer female
     Route: 065

REACTIONS (7)
  - Skin exfoliation [Recovering/Resolving]
  - Diarrhoea [Unknown]
  - Hypotension [Unknown]
  - Skin disorder [Unknown]
  - Fatigue [Unknown]
  - Lung neoplasm [Unknown]
  - Poor quality sleep [Unknown]
